FAERS Safety Report 6313243-7 (Version None)
Quarter: 2009Q3

REPORT INFORMATION
  Report Type: 
  Country: None (occurrence: None)
  Receive Date: 20090818
  Receipt Date: 20090813
  Transmission Date: 20100115
  Serious: No
  Sender: FDA-Public Use
  Company Number: US-B.I. PHARMACEUTICALS,INC./RIDGEFIELD-2009-BP-09664BP

PATIENT
  Sex: Female

DRUGS (5)
  1. SPIRIVA [Suspect]
     Route: 055
     Dates: start: 20090601
  2. SPIRIVA [Suspect]
     Route: 055
     Dates: start: 20080601, end: 20080901
  3. CELEBREX [Concomitant]
     Indication: ARTHRITIS
  4. ACIPHEX [Concomitant]
     Indication: GASTROOESOPHAGEAL REFLUX DISEASE
  5. TRIAMTERENE [Concomitant]
     Indication: INNER EAR DISORDER

REACTIONS (2)
  - DIZZINESS [None]
  - MENIERE'S DISEASE [None]
